FAERS Safety Report 15358246 (Version 1)
Quarter: 2018Q3

REPORT INFORMATION
  Report Type: Spontaneous
  Country: US (occurrence: US)
  Receive Date: 20180906
  Receipt Date: 20180906
  Transmission Date: 20181010
  Serious: No
  Sender: FDA-Public Use
  Company Number: US-PERRIGO-18US006630

PATIENT
  Age: 59 Year
  Sex: Female
  Weight: 76.19 kg

DRUGS (2)
  1. OTHER ANTIGLAUCOMA PREPARATIONS [Concomitant]
     Indication: GLAUCOMA
     Dosage: UNKNOWN, BID
     Route: 047
  2. MINOXIDIL. [Suspect]
     Active Substance: MINOXIDIL
     Indication: ALOPECIA
     Dosage: 1 ML, BID
     Route: 061
     Dates: start: 201710, end: 201803

REACTIONS (1)
  - Drug ineffective [Unknown]

NARRATIVE: CASE EVENT DATE: 201710
